FAERS Safety Report 17453855 (Version 3)
Quarter: 2020Q1

REPORT INFORMATION
  Report Type: Report from Study
  Country: US (occurrence: US)
  Receive Date: 20200224
  Receipt Date: 20200311
  Transmission Date: 20200409
  Serious: Yes (Hospitalization)
  Sender: FDA-Public Use
  Company Number: US-ACTELION-A-US2019-194371

PATIENT
  Age: 65 Year
  Sex: Female
  Weight: 84.81 kg

DRUGS (2)
  1. TRACLEER [Suspect]
     Active Substance: BOSENTAN
     Indication: PULMONARY ARTERIAL HYPERTENSION
     Dosage: 125 MG, BID
     Route: 048
  2. TYVASO [Suspect]
     Active Substance: TREPROSTINIL
     Indication: PRODUCT USED FOR UNKNOWN INDICATION
     Dosage: UNK
     Route: 065

REACTIONS (14)
  - Breath sounds abnormal [Unknown]
  - Blood iron decreased [Unknown]
  - Iron binding capacity total decreased [Unknown]
  - Troponin I increased [Unknown]
  - Blood urea increased [Unknown]
  - Serum ferritin increased [Unknown]
  - Pneumonia [Unknown]
  - Carbon dioxide increased [Unknown]
  - Cardiac murmur [Unknown]
  - Blood potassium decreased [Not Recovered/Not Resolved]
  - Influenza [Unknown]
  - Productive cough [Unknown]
  - Transferrin saturation decreased [Unknown]
  - Headache [Unknown]

NARRATIVE: CASE EVENT DATE: 20200123
